FAERS Safety Report 18794792 (Version 1)
Quarter: 2021Q1

REPORT INFORMATION
  Report Type: Spontaneous
  Country: US (occurrence: US)
  Receive Date: 20210127
  Receipt Date: 20210127
  Transmission Date: 20210419
  Serious: Yes (Hospitalization)
  Sender: FDA-Public Use
  Company Number: None

PATIENT
  Age: 81 Year
  Sex: Male
  Weight: 64.35 kg

DRUGS (1)
  1. PEMBROLIZUMAB. [Suspect]
     Active Substance: PEMBROLIZUMAB
     Indication: METASTASIS
     Dosage: ?          OTHER FREQUENCY:3 WEEKS;?
     Route: 042
     Dates: start: 20200801, end: 20210120

REACTIONS (2)
  - Abdominal pain upper [None]
  - Chronic gastritis [None]

NARRATIVE: CASE EVENT DATE: 19210122
